FAERS Safety Report 10137635 (Version 1)
Quarter: 2014Q2

REPORT INFORMATION
  Report Type: Spontaneous
  Country: US (occurrence: None)
  Receive Date: 20140425
  Receipt Date: 20140425
  Transmission Date: 20141212
  Serious: Yes (Other)
  Sender: FDA-Public Use
  Company Number: UTC-047441

PATIENT
  Age: 62 Year
  Sex: Male
  Weight: 104.3 kg

DRUGS (1)
  1. REMODULIN [Suspect]
     Indication: PULMONARY ARTERIAL HYPERTENSION
     Dosage: 48.96 UG/KG (0.034 UG/KG, 1 IN 1 MIN) SUBCUTANEOUS
     Route: 058
     Dates: start: 20130816

REACTIONS (1)
  - Fluid retention [None]
